FAERS Safety Report 5607404-X (Version None)
Quarter: 2008Q1

REPORT INFORMATION
  Report Type: 
  Country: None (occurrence: None)
  Receive Date: 20080128
  Receipt Date: 20080128
  Transmission Date: 20080703
  Serious: Yes (Life-Threatening, Hospitalization)
  Sender: FDA-Public Use
  Company Number: None

PATIENT
  Age: 64 Year
  Sex: Female
  Weight: 43.0917 kg

DRUGS (1)
  1. SIMVASTATIN [Suspect]
     Dosage: 40MG 1XDAILY PO
     Route: 048
     Dates: start: 20071207, end: 20071229

REACTIONS (4)
  - ABASIA [None]
  - ACTIVITIES OF DAILY LIVING IMPAIRED [None]
  - DYSSTASIA [None]
  - MUSCULAR WEAKNESS [None]
